FAERS Safety Report 8443198-0 (Version None)
Quarter: 2012Q2

REPORT INFORMATION
  Report Type: 
  Country: None (occurrence: None)
  Receive Date: 20120617
  Receipt Date: 20120607
  Transmission Date: 20120825
  Serious: Yes (Disabling, Other)
  Sender: FDA-Public Use
  Company Number: CO-AMGEN-COLSP2012036795

PATIENT
  Age: 66 Year
  Sex: Female

DRUGS (5)
  1. CALCIUM WITH VITAMIN D             /01233101/ [Concomitant]
     Indication: RHEUMATOID ARTHRITIS
     Dosage: 1 TABLET ONCE A DAY ORALLY
  2. ENBREL [Suspect]
     Indication: RHEUMATOID ARTHRITIS
     Dosage: 50 MG, WEEKLY
     Route: 058
     Dates: start: 20120308
  3. CALCITROL                          /00508501/ [Concomitant]
     Indication: RHEUMATOID ARTHRITIS
     Dosage: 1 CAPSULE ONCE A DAY ORALLY
     Route: 048
     Dates: start: 20120401
  4. LEVOTHYROXINE SODIUM [Concomitant]
     Dosage: 100 MG, 1X/DAY
     Dates: start: 19870101
  5. ACETAMINOPHEN [Concomitant]
     Indication: PAIN
     Dosage: UNK

REACTIONS (12)
  - SKIN DISCOLOURATION [None]
  - HEAD TITUBATION [None]
  - FATIGUE [None]
  - TREMOR [None]
  - CARDIAC DISCOMFORT [None]
  - ATROPHY [None]
  - DYSSTASIA [None]
  - PAIN IN EXTREMITY [None]
  - INTERVERTEBRAL DISC PROTRUSION [None]
  - CARDIAC DISORDER [None]
  - BLOOD PRESSURE FLUCTUATION [None]
  - FEELING HOT [None]
